FAERS Safety Report 5521490-7 (Version None)
Quarter: 2007Q4

REPORT INFORMATION
  Report Type: 
  Country: None (occurrence: None)
  Receive Date: 20071119
  Receipt Date: 20071107
  Transmission Date: 20080405
  Serious: Yes (Other)
  Sender: FDA-Public Use
  Company Number: US-PFIZER INC-2007096284

PATIENT
  Sex: Female
  Weight: 100 kg

DRUGS (4)
  1. CHANTIX [Suspect]
     Indication: SMOKING CESSATION THERAPY
     Dates: start: 20071105, end: 20071105
  2. VERAPAMIL [Concomitant]
     Indication: HYPERTENSION
  3. VALSARTAN [Concomitant]
     Indication: HYPERTENSION
  4. SYNTHROID [Concomitant]
     Indication: THYROID DISORDER

REACTIONS (5)
  - DYSGEUSIA [None]
  - HEADACHE [None]
  - THROAT IRRITATION [None]
  - THROAT TIGHTNESS [None]
  - VOMITING [None]
